FAERS Safety Report 8231098-0 (Version None)
Quarter: 2012Q1

REPORT INFORMATION
  Report Type: 
  Country: None (occurrence: None)
  Receive Date: 20120322
  Receipt Date: 20120322
  Transmission Date: 20120608
  Serious: Yes (Other)
  Sender: FDA-Public Use
  Company Number: None

PATIENT
  Age: 72 Year
  Sex: Female
  Weight: 86.182 kg

DRUGS (2)
  1. MY?? [Concomitant]
     Indication: OPHTHALMOLOGICAL EXAMINATION
     Dosage: 1 DROP
     Route: 031
  2. EPINASTINE HYDROCHLORIDE [Suspect]
     Indication: EYE ALLERGY
     Dosage: 1 DROP
     Route: 031

REACTIONS (1)
  - REACTION TO PRESERVATIVES [None]
